FAERS Safety Report 22276475 (Version 1)
Quarter: 2023Q2

REPORT INFORMATION
  Report Type: Spontaneous
  Country: DE (occurrence: DE)
  Receive Date: 20230503
  Receipt Date: 20230503
  Transmission Date: 20230721
  Serious: Yes (Death, Hospitalization, Other)
  Sender: FDA-Public Use
  Company Number: None

PATIENT
  Age: 86 Year
  Sex: Male
  Weight: 72 kg

DRUGS (8)
  1. ERLEADA [Suspect]
     Active Substance: APALUTAMIDE
     Indication: Prostate cancer
     Dosage: 4/TAG
     Route: 048
     Dates: start: 202302, end: 20230320
  2. CHOLECALCIFEROL [Concomitant]
     Active Substance: CHOLECALCIFEROL
     Indication: Vitamin D deficiency
     Dosage: 1/WOCHE
     Route: 048
     Dates: end: 20230408
  3. DIGITOXIN [Concomitant]
     Active Substance: DIGITOXIN
     Indication: Atrial fibrillation
     Dosage: 1X/TAG
     Route: 048
     Dates: end: 20230201
  4. COSOPT [Concomitant]
     Active Substance: DORZOLAMIDE HYDROCHLORIDE\TIMOLOL MALEATE
     Indication: Ocular hypertension
     Dosage: 2X TAGLICH
     Route: 047
     Dates: end: 20230408
  5. ELIQUIS [Concomitant]
     Active Substance: APIXABAN
     Indication: Atrial fibrillation
     Dosage: 2/TAG
     Route: 048
     Dates: end: 20230408
  6. LYRICA [Concomitant]
     Active Substance: PREGABALIN
     Indication: Polyneuropathy
     Dosage: 1/TAG
     Route: 048
     Dates: end: 20230408
  7. BIMATOPROST [Concomitant]
     Active Substance: BIMATOPROST
     Indication: Ocular hypertension
     Dosage: 1X TAGLICH
     Route: 047
     Dates: end: 20230408
  8. GOSERELIN ACETATE [Concomitant]
     Active Substance: GOSERELIN ACETATE
     Indication: Prostate cancer
     Route: 058
     Dates: end: 20230208

REACTIONS (13)
  - Stevens-Johnson syndrome [Fatal]
  - C-reactive protein increased [Unknown]
  - Oral disorder [Unknown]
  - General physical health deterioration [Recovering/Resolving]
  - Anuria [Unknown]
  - Pruritus [Unknown]
  - Acute kidney injury [Unknown]
  - Rash [Recovering/Resolving]
  - Skin exfoliation [Unknown]
  - White blood cell count increased [Unknown]
  - Pyrexia [Recovering/Resolving]
  - Hypophagia [Unknown]
  - Oliguria [Unknown]

NARRATIVE: CASE EVENT DATE: 20230301
